FAERS Safety Report 13497692 (Version 3)
Quarter: 2017Q2

REPORT INFORMATION
  Report Type: Spontaneous
  Country: US (occurrence: US)
  Receive Date: 20170501
  Receipt Date: 20170517
  Transmission Date: 20170830
  Serious: No
  Sender: FDA-Public Use
  Company Number: US-ASTRAZENECA-2017SE42121

PATIENT
  Sex: Male
  Weight: 96.2 kg

DRUGS (3)
  1. PLAVIX [Concomitant]
     Active Substance: CLOPIDOGREL BISULFATE
     Indication: TRANSIENT ISCHAEMIC ATTACK
     Dosage: 75MG THE OTHER 2 DAYS
  2. BYDUREON [Suspect]
     Active Substance: EXENATIDE
     Indication: DIABETES MELLITUS
     Route: 065
     Dates: start: 201703
  3. COUMADIN [Concomitant]
     Active Substance: WARFARIN SODIUM
     Indication: TRANSIENT ISCHAEMIC ATTACK
     Dosage: 5 MG 5 DAYS A WEEK AND COUMADIN 2MG

REACTIONS (5)
  - Injection site mass [Not Recovered/Not Resolved]
  - Blood glucose increased [Unknown]
  - Injection site pain [Unknown]
  - Needle issue [Unknown]
  - Wrong technique in product usage process [Unknown]
